FAERS Safety Report 15114053 (Version 1)
Quarter: 2018Q3

REPORT INFORMATION
  Report Type: Spontaneous
  Country: IN (occurrence: IN)
  Receive Date: 20180706
  Receipt Date: 20180706
  Transmission Date: 20181010
  Serious: Yes (Life-Threatening, Hospitalization, Other)
  Sender: FDA-Public Use
  Company Number: IN-BAYER-2018-123393

PATIENT
  Age: 27 Year
  Sex: Female

DRUGS (1)
  1. BAYCIP 500 MG [Suspect]
     Active Substance: CIPROFLOXACIN
     Dosage: 14 DF, UNK

REACTIONS (4)
  - Crystal nephropathy [Recovered/Resolved]
  - Acute kidney injury [Recovered/Resolved]
  - Renal tubular necrosis [Recovered/Resolved]
  - Intentional overdose [Recovered/Resolved]
